FAERS Safety Report 18228508 (Version 2)
Quarter: 2020Q4

REPORT INFORMATION
  Report Type: Other
  Country: US (occurrence: US)
  Receive Date: 20200903
  Receipt Date: 20201125
  Transmission Date: 20210113
  Serious: Yes (Hospitalization, Congenital Anomaly, Other)
  Sender: FDA-Public Use
  Company Number: US-AMAG PHARMACEUTICALS, INC.-AMAG202003005

PATIENT
  Age: 0 Year
  Sex: Female
  Weight: 2.35 kg

DRUGS (1)
  1. MAKENA [Suspect]
     Active Substance: HYDROXYPROGESTERONE CAPROATE
     Indication: FOETAL EXPOSURE DURING PREGNANCY
     Route: 064
     Dates: start: 20200504, end: 20200814

REACTIONS (3)
  - Abdominal mass [Unknown]
  - Talipes [Unknown]
  - Premature baby [Unknown]

NARRATIVE: CASE EVENT DATE: 2020
